FAERS Safety Report 4338582-0 (Version None)
Quarter: 2004Q2

REPORT INFORMATION
  Report Type: 
  Country: None (occurrence: None)
  Receive Date: 20040409
  Receipt Date: 20040407
  Transmission Date: 20050107
  Serious: Yes (Hospitalization)
  Sender: FDA-Public Use
  Company Number: USA-2004-0014100

PATIENT
  Sex: Female

DRUGS (1)
  1. OXYCONTIN [Suspect]
     Dosage: 10 MG, BID, ORAL
     Route: 048

REACTIONS (5)
  - BLOOD CREATINE INCREASED [None]
  - DECREASED APPETITE [None]
  - DRUG INTOLERANCE [None]
  - PNEUMONIA [None]
  - SEDATION [None]
